FAERS Safety Report 11556112 (Version 1)
Quarter: 2015Q3

REPORT INFORMATION
  Report Type: Spontaneous
  Country: US (occurrence: US)
  Receive Date: 20150925
  Receipt Date: 20150925
  Transmission Date: 20151125
  Serious: No
  Sender: FDA-Public Use
  Company Number: US-WATSON-2014-28435

PATIENT
  Age: 91 Year
  Sex: Male
  Weight: 68.3 kg

DRUGS (1)
  1. CARAFATE [Suspect]
     Active Substance: SUCRALFATE
     Indication: GASTRIC ULCER
     Dosage: 2 G, BID
     Route: 065
     Dates: start: 20140904, end: 201409

REACTIONS (1)
  - Constipation [Not Recovered/Not Resolved]
